FAERS Safety Report 15795917 (Version 1)
Quarter: 2019Q1

REPORT INFORMATION
  Report Type: Spontaneous
  Country: US (occurrence: US)
  Receive Date: 20190107
  Receipt Date: 20190107
  Transmission Date: 20190417
  Serious: No
  Sender: FDA-Public Use
  Company Number: US-MYLANLABS-2018M1093404

PATIENT
  Sex: Male
  Weight: 47 kg

DRUGS (1)
  1. FENTANYL TRANSDERMAL SYSTEM [Suspect]
     Active Substance: FENTANYL
     Indication: PAIN
     Dosage: UNK
     Route: 062
     Dates: start: 20181211

REACTIONS (4)
  - Wrong technique in product usage process [Unknown]
  - Product dose omission [Recovering/Resolving]
  - Product residue present [Unknown]
  - Product adhesion issue [Unknown]
